FAERS Safety Report 15388170 (Version 1)
Quarter: 2018Q3

REPORT INFORMATION
  Report Type: Spontaneous
  Country: DE (occurrence: DE)
  Receive Date: 20180915
  Receipt Date: 20180915
  Transmission Date: 20181010
  Serious: Yes (Other)
  Sender: FDA-Public Use
  Company Number: DE-AUROBINDO-AUR-APL-2018-045547

PATIENT
  Age: 7 Year
  Sex: Male

DRUGS (1)
  1. SILDENAFIL FILM?COATED TABLET [Suspect]
     Active Substance: SILDENAFIL
     Indication: PRODUCT USED FOR UNKNOWN INDICATION
     Dosage: 15 MG, 3X/DAY
     Route: 065
     Dates: start: 20180501, end: 20180813

REACTIONS (3)
  - Abnormal behaviour [Not Recovered/Not Resolved]
  - Oxygen saturation decreased [Unknown]
  - Memory impairment [Unknown]

NARRATIVE: CASE EVENT DATE: 2018
